FAERS Safety Report 20757592 (Version 1)
Quarter: 2022Q2

REPORT INFORMATION
  Report Type: Spontaneous
  Country: US (occurrence: US)
  Receive Date: 20220427
  Receipt Date: 20220427
  Transmission Date: 20220721
  Serious: No
  Sender: FDA-Public Use
  Company Number: US-PFIZER INC-202101504369

PATIENT
  Age: 74 Year
  Sex: Female
  Weight: 90.72 kg

DRUGS (1)
  1. AROMASIN [Suspect]
     Active Substance: EXEMESTANE
     Indication: Breast cancer
     Dosage: 25 MG, 1X/DAY

REACTIONS (1)
  - Pain in extremity [Not Recovered/Not Resolved]
